FAERS Safety Report 25447830 (Version 1)
Quarter: 2025Q2

REPORT INFORMATION
  Report Type: Spontaneous
  Country: US (occurrence: US)
  Receive Date: 20250617
  Receipt Date: 20250617
  Transmission Date: 20250716
  Serious: No
  Sender: FRESENIUS KABI
  Company Number: US-FreseniusKabi-FK202508182

PATIENT
  Age: 79 Year
  Sex: Male
  Weight: 94.3 kg

DRUGS (5)
  1. POLOCAINE-MPF [Suspect]
     Active Substance: MEPIVACAINE HYDROCHLORIDE
     Indication: Anaesthesia
     Route: 042
     Dates: start: 20250609, end: 20250609
  2. POLOCAINE-MPF [Suspect]
     Active Substance: MEPIVACAINE HYDROCHLORIDE
     Indication: Arteriovenous fistula operation
  3. CEFAZOLIN [Concomitant]
     Active Substance: CEFAZOLIN
     Indication: Product used for unknown indication
     Route: 042
     Dates: start: 20250609
  4. HEPARIN [Concomitant]
     Active Substance: HEPARIN SODIUM
     Indication: Product used for unknown indication
     Route: 042
     Dates: start: 20250609
  5. PHENYLEPHRINE [Concomitant]
     Active Substance: PHENYLEPHRINE
     Indication: Product used for unknown indication
     Dates: start: 20250609, end: 20250609

REACTIONS (1)
  - Drug ineffective [Unknown]

NARRATIVE: CASE EVENT DATE: 20250609
